FAERS Safety Report 10019223 (Version 1)
Quarter: 2014Q1

REPORT INFORMATION
  Report Type: Spontaneous
  Country: US (occurrence: US)
  Receive Date: 20140318
  Receipt Date: 20140318
  Transmission Date: 20141002
  Serious: Yes (Hospitalization)
  Sender: FDA-Public Use
  Company Number: US-BAYER-2014-040072

PATIENT
  Age: 36 Year
  Sex: Female
  Weight: 84.81 kg

DRUGS (14)
  1. YASMIN [Suspect]
     Dosage: UNK
     Dates: start: 20091002, end: 20110406
  2. YAZ [Suspect]
  3. YAZ [Suspect]
     Dosage: UNK
  4. OCELLA [Suspect]
  5. SYMBICORT [Concomitant]
     Dosage: 160-4.5 MCG
  6. SYMBICORT [Concomitant]
     Dosage: 80/4.5, TWO PUFFS B.I.D
  7. BUPROPION [Concomitant]
     Dosage: 100 MG, UNK
     Route: 048
  8. VALTREX [Concomitant]
     Dosage: 500 MG, UNK
     Route: 048
  9. VALACICLOVIR [Concomitant]
     Dosage: 500 MG, UNK
     Route: 048
  10. ALLEGRA [Concomitant]
     Dosage: 180 MG, PRN
     Route: 048
  11. CEFTIN [Concomitant]
     Dosage: 500MG, TWO TIMES DAILY,
     Route: 048
  12. TESSALON [Concomitant]
     Dosage: 200MG EVERY EIGHT HOURS
  13. WELLBUTRIN [Concomitant]
     Dosage: 100 MG, UNK
     Route: 048
  14. ZYRTEC [Concomitant]
     Dosage: DAILY
     Route: 048

REACTIONS (1)
  - Pulmonary embolism [None]
